FAERS Safety Report 8584099-7 (Version None)
Quarter: 2012Q3

REPORT INFORMATION
  Report Type: 
  Country: None (occurrence: None)
  Receive Date: 20120810
  Receipt Date: 20120723
  Transmission Date: 20120928
  Serious: No
  Sender: FDA-Public Use
  Company Number: US-009507513-1208USA001279

PATIENT

DRUGS (2)
  1. CLARITIN [Suspect]
     Indication: EYE PRURITUS
     Dosage: UNK, UNKNOWN
  2. CLARITIN [Suspect]
     Indication: COUGH

REACTIONS (1)
  - DRUG EFFECT DECREASED [None]
